FAERS Safety Report 4340540-7 (Version None)
Quarter: 2004Q2

REPORT INFORMATION
  Report Type: 
  Country: None (occurrence: None)
  Receive Date: 20040414
  Receipt Date: 20040401
  Transmission Date: 20050107
  Serious: Yes (Hospitalization, Other)
  Sender: FDA-Public Use
  Company Number: 9929465

PATIENT
  Age: 80 Year
  Sex: Male
  Weight: 70 kg

DRUGS (11)
  1. ZITHROMAX [Suspect]
     Indication: PNEUMONIA
     Dosage: 500 MG (DAILY), ORAL
     Route: 048
     Dates: start: 19980613, end: 19980615
  2. WARFARIN SODIUM [Suspect]
     Indication: CEREBRAL ARTERY EMBOLISM
     Dosage: 4.5 MG (DAILY), ORAL
     Route: 048
  3. ACETAMINOPHEN [Suspect]
     Indication: ILL-DEFINED DISORDER
     Dosage: 1 GRAM (PRN), ORAL
     Route: 048
  4. GENTAMICIN [Suspect]
     Indication: PNEUMONIA
     Dosage: 240 MG (TID), INTRAVENOUS
     Route: 042
     Dates: start: 19980610
  5. AMPICILLIN [Suspect]
     Indication: PNEUMONIA
     Dosage: 4 GRAM (DAILY), INTRAVENOUS
     Route: 042
     Dates: start: 19980611, end: 19980616
  6. DIGOXIN [Concomitant]
  7. GLIPIZIDE [Concomitant]
  8. METFORMIN HCL [Concomitant]
  9. ACETYLSALICYLIC ACID SRT [Concomitant]
  10. AMOXI-CLAVULANICO (AMOXICILLIN, CLAVULANIC ACID) [Concomitant]
  11. INSULIN [Concomitant]

REACTIONS (18)
  - ASTHENIA [None]
  - CONFUSIONAL STATE [None]
  - DEPRESSED LEVEL OF CONSCIOUSNESS [None]
  - DIFFICULTY IN WALKING [None]
  - DRUG INTERACTION [None]
  - DYSURIA [None]
  - ENDOCARDITIS [None]
  - FALL [None]
  - GLUCOSE URINE PRESENT [None]
  - HYPOGLYCAEMIA [None]
  - INTERNATIONAL NORMALISED RATIO INCREASED [None]
  - MALAISE [None]
  - PNEUMONIA [None]
  - POLLAKIURIA [None]
  - PROTEIN URINE PRESENT [None]
  - PROTHROMBIN LEVEL DECREASED [None]
  - PYREXIA [None]
  - RED BLOOD CELLS URINE [None]
